FAERS Safety Report 6814862-1 (Version None)
Quarter: 2010Q3

REPORT INFORMATION
  Report Type: 
  Country: None (occurrence: None)
  Receive Date: 20100702
  Receipt Date: 20100628
  Transmission Date: 20110219
  Serious: Yes (Hospitalization)
  Sender: FDA-Public Use
  Company Number: B0662663A

PATIENT
  Sex: Female
  Weight: 60 kg

DRUGS (8)
  1. AMOXICILLIN TRIHYDRATE [Suspect]
     Indication: ODYNOPHAGIA
     Route: 048
     Dates: start: 20100507, end: 20100509
  2. AMOXICILLIN AND CLAVULANATE POTASSIUM [Suspect]
     Indication: TONSILLITIS
     Dosage: 1G TWICE PER DAY
     Route: 048
     Dates: start: 20100419, end: 20100424
  3. ADVIL LIQUI-GELS [Suspect]
     Indication: PRODUCT USED FOR UNKNOWN INDICATION
     Route: 048
     Dates: start: 20100401, end: 20100501
  4. VOLTAREN [Suspect]
     Indication: PRODUCT USED FOR UNKNOWN INDICATION
     Route: 048
     Dates: start: 20100401, end: 20100501
  5. RHINADVIL [Suspect]
     Indication: PRODUCT USED FOR UNKNOWN INDICATION
     Route: 048
     Dates: start: 20100401, end: 20100501
  6. DEXAMETHASONE + NYSTATIN [Suspect]
     Route: 001
     Dates: start: 20100419, end: 20100424
  7. OXYTETRACYCLINE + POLYMIXIN B SULPHATE [Suspect]
     Route: 001
     Dates: start: 20100419, end: 20100424
  8. LEVOTHYROXINE SODIUM [Concomitant]
     Route: 065

REACTIONS (4)
  - AGRANULOCYTOSIS [None]
  - BONE MARROW FAILURE [None]
  - HYPOPHOSPHATAEMIA [None]
  - INFLAMMATION [None]
